FAERS Safety Report 7171050-X (Version None)
Quarter: 2010Q4

REPORT INFORMATION
  Report Type: 
  Country: None (occurrence: None)
  Receive Date: 20101217
  Receipt Date: 20101208
  Transmission Date: 20110411
  Serious: Yes (Other)
  Sender: FDA-Public Use
  Company Number: US-CELGENEUS-163-21880-10121190

PATIENT
  Sex: Female

DRUGS (12)
  1. REVLIMID [Suspect]
     Indication: MULTIPLE MYELOMA
     Route: 048
     Dates: start: 20091201, end: 20100101
  2. REVLIMID [Suspect]
     Route: 048
     Dates: start: 20100201, end: 20100101
  3. REVLIMID [Suspect]
     Route: 048
     Dates: start: 20100501
  4. ATIVAN [Concomitant]
     Route: 065
  5. REGLAN [Concomitant]
     Route: 065
  6. LAMICTAL [Concomitant]
     Route: 065
  7. PRILOSEC [Concomitant]
     Route: 065
  8. LEXAPRO [Concomitant]
     Route: 065
  9. CALCIUM + D [Concomitant]
     Route: 065
  10. ASPIRIN [Concomitant]
     Route: 065
  11. RITUXAN [Concomitant]
     Route: 050
  12. MAGNESIUM [Concomitant]
     Route: 065

REACTIONS (2)
  - FRACTURE [None]
  - STRESS FRACTURE [None]
